FAERS Safety Report 7795034-3 (Version None)
Quarter: 2011Q4

REPORT INFORMATION
  Report Type: 
  Country: None (occurrence: None)
  Receive Date: 20111004
  Receipt Date: 20111003
  Transmission Date: 20120403
  Serious: Yes (Death, Other)
  Sender: FDA-Public Use
  Company Number: PHHY2011US67818

PATIENT
  Sex: Male
  Weight: 66.213 kg

DRUGS (8)
  1. EXJADE [Suspect]
     Indication: IRON OVERLOAD
  2. AVAPRO [Concomitant]
     Dosage: UNK UKN, UNK
  3. CARDIZEM [Concomitant]
     Dosage: UNK UKN, UNK
  4. ATENOLOL [Concomitant]
     Dosage: UNK UKN, UNK
  5. PROTONIX [Concomitant]
     Dosage: UNK UKN, UNK
  6. EXJADE [Suspect]
     Indication: ACUTE MYELOID LEUKAEMIA
     Dosage: 1250 MG, DAILY
     Route: 048
     Dates: start: 20100308
  7. DIFLUCAN [Concomitant]
  8. AVELOX [Concomitant]
     Dosage: UNK UKN, UNK

REACTIONS (3)
  - NEUTROPENIA [None]
  - ZYGOMYCOSIS [None]
  - ACUTE MYELOID LEUKAEMIA [None]
